FAERS Safety Report 11590445 (Version 1)
Quarter: 2015Q4

REPORT INFORMATION
  Report Type: Spontaneous
  Country: DE (occurrence: DE)
  Receive Date: 20151002
  Receipt Date: 20151002
  Transmission Date: 20160304
  Serious: Yes (Hospitalization)
  Sender: FDA-Public Use
  Company Number: DE-TEVA-597231GER

PATIENT
  Age: 79 Year
  Sex: Female

DRUGS (12)
  1. MAGNESIUM [Concomitant]
     Active Substance: MAGNESIUM
     Route: 048
  2. VALDOXAN [Interacting]
     Active Substance: AGOMELATINE
     Route: 048
     Dates: start: 20141025, end: 20141120
  3. DELIX [Interacting]
     Active Substance: RAMIPRIL
     Route: 048
  4. NOVODIGAL [Concomitant]
     Active Substance: .BETA.-ACETYLDIGOXIN
     Route: 048
  5. AMLODIPIN [Concomitant]
     Active Substance: AMLODIPINE BESYLATE
     Route: 048
  6. PANTOPRAZOL ABZ [Interacting]
     Active Substance: PANTOPRAZOLE SODIUM
     Route: 048
  7. OXAZEPAM. [Concomitant]
     Active Substance: OXAZEPAM
     Route: 048
  8. EUTHYROX [Concomitant]
     Active Substance: LEVOTHYROXINE SODIUM
     Route: 048
  9. VASOMOTAL [Concomitant]
     Route: 048
  10. HCT [Suspect]
     Active Substance: HYDROCHLOROTHIAZIDE
     Route: 048
     Dates: end: 20141120
  11. PREDNISOLON [Concomitant]
     Active Substance: PREDNISOLONE
     Route: 048
  12. MADOPAR [Concomitant]
     Active Substance: BENSERAZIDE HYDROCHLORIDE\LEVODOPA
     Route: 048

REACTIONS (5)
  - Dizziness [Recovered/Resolved]
  - Nausea [Recovered/Resolved]
  - Transaminases increased [Recovered/Resolved]
  - Hyponatraemia [Recovered/Resolved]
  - Drug interaction [Unknown]

NARRATIVE: CASE EVENT DATE: 20141120
